FAERS Safety Report 9896580 (Version 1)
Quarter: 2014Q1

REPORT INFORMATION
  Report Type: Spontaneous
  Country: US (occurrence: US)
  Receive Date: 20140213
  Receipt Date: 20140213
  Transmission Date: 20141002
  Serious: No
  Sender: FDA-Public Use
  Company Number: US-BRISTOL-MYERS SQUIBB COMPANY-19124361

PATIENT
  Age: 23 Year
  Sex: Female
  Weight: 61.22 kg

DRUGS (6)
  1. ABATACEPT SUBQ INJECTION 125MG/ML [Suspect]
     Dosage: INITIALLY IV FOR 2 YEARS?07JUL AND 14JUL2013
     Route: 058
     Dates: start: 20130707
  2. BACTRIM [Concomitant]
     Dosage: DOUBLE-STRENGTH
  3. HYDROCORTISONE [Concomitant]
  4. OMEPRAZOLE [Concomitant]
  5. MYCOPHENOLATE SODIUM [Concomitant]
  6. VITAMIN D [Concomitant]
     Dosage: 1DF:D 50,000U (1.25 MG)

REACTIONS (1)
  - Injection site swelling [Recovering/Resolving]
